FAERS Safety Report 19039342 (Version 1)
Quarter: 2021Q1

REPORT INFORMATION
  Report Type: Spontaneous
  Country: US (occurrence: US)
  Receive Date: 20210322
  Receipt Date: 20210322
  Transmission Date: 20210420
  Serious: No
  Sender: FDA-Public Use
  Company Number: US-TEVA-2021-US-1885854

PATIENT
  Sex: Female

DRUGS (1)
  1. AJOVY [Suspect]
     Active Substance: FREMANEZUMAB-VFRM
     Indication: MIGRAINE
     Dosage: MONTHLY
     Route: 065

REACTIONS (5)
  - Device leakage [Unknown]
  - Device delivery system issue [Unknown]
  - Migraine [Unknown]
  - Device issue [Unknown]
  - Incorrect dose administered [Unknown]
